FAERS Safety Report 8549411-3 (Version None)
Quarter: 2012Q3

REPORT INFORMATION
  Report Type: 
  Country: None (occurrence: None)
  Receive Date: 20120730
  Receipt Date: 20120726
  Transmission Date: 20120928
  Serious: Yes (Hospitalization, Other)
  Sender: FDA-Public Use
  Company Number: US-PFIZER INC-2012182036

PATIENT
  Sex: Female
  Weight: 63.492 kg

DRUGS (5)
  1. METOPROLOL [Concomitant]
     Indication: HYPERTENSION
     Dosage: 50 MG,DAILY
  2. CELEBREX [Suspect]
     Indication: MULTIPLE FRACTURES
  3. CELEBREX [Suspect]
     Indication: KNEE ARTHROPLASTY
  4. LIPITOR [Suspect]
     Indication: BLOOD CHOLESTEROL INCREASED
     Dosage: 20 MG, DAILY
  5. CELEBREX [Suspect]
     Indication: ARTHRITIS
     Dosage: 200 MG, DAILY

REACTIONS (4)
  - CEREBROVASCULAR ACCIDENT [None]
  - CEREBRAL THROMBOSIS [None]
  - BRAIN OEDEMA [None]
  - MEMORY IMPAIRMENT [None]
